FAERS Safety Report 6942212-9 (Version None)
Quarter: 2010Q3

REPORT INFORMATION
  Report Type: 
  Country: None (occurrence: None)
  Receive Date: 20100826
  Receipt Date: 20100721
  Transmission Date: 20110219
  Serious: Yes (Other)
  Sender: FDA-Public Use
  Company Number: JP-ASTRAZENECA-2010SE39706

PATIENT
  Age: 60 Year
  Sex: Female

DRUGS (1)
  1. BLOPRESS [Suspect]
     Indication: HYPERTENSION
     Route: 048
     Dates: start: 20100713, end: 20100716

REACTIONS (2)
  - ERYTHEMA MULTIFORME [None]
  - HYPERTHERMIA [None]
